FAERS Safety Report 16851530 (Version 1)
Quarter: 2019Q3

REPORT INFORMATION
  Report Type: Spontaneous
  Country: US (occurrence: US)
  Receive Date: 20190925
  Receipt Date: 20190925
  Transmission Date: 20191005
  Serious: Yes (Death, Other)
  Sender: FDA-Public Use
  Company Number: US-SA-2019SA261221

PATIENT
  Age: 21 Year
  Sex: Male

DRUGS (13)
  1. OXALIPLATIN. [Suspect]
     Active Substance: OXALIPLATIN
     Indication: METASTASES TO LIVER
  2. CALCIUM FOLINATE [Suspect]
     Active Substance: LEUCOVORIN CALCIUM
     Indication: METASTASES TO LYMPH NODES
  3. CALCIUM FOLINATE [Suspect]
     Active Substance: LEUCOVORIN CALCIUM
     Indication: SMALL INTESTINE ADENOCARCINOMA
  4. OXALIPLATIN. [Suspect]
     Active Substance: OXALIPLATIN
     Indication: METASTASES TO LYMPH NODES
  5. CALCIUM FOLINATE [Suspect]
     Active Substance: LEUCOVORIN CALCIUM
     Indication: HEPATIC LESION
  6. FLUOROURACIL. [Suspect]
     Active Substance: FLUOROURACIL
     Indication: HEPATIC LESION
  7. CALCIUM FOLINATE [Suspect]
     Active Substance: LEUCOVORIN CALCIUM
     Indication: METASTASES TO LIVER
     Dosage: UNK, UNK
     Route: 065
     Dates: start: 200810, end: 2008
  8. FLUOROURACIL. [Suspect]
     Active Substance: FLUOROURACIL
     Indication: SMALL INTESTINE ADENOCARCINOMA
  9. FLUOROURACIL. [Suspect]
     Active Substance: FLUOROURACIL
     Indication: METASTASES TO LIVER
     Dosage: UNK, QCY
     Route: 065
     Dates: start: 200810, end: 2008
  10. MERCAPTOPURINE. [Concomitant]
     Active Substance: MERCAPTOPURINE
     Indication: PROPHYLAXIS
     Dosage: UNK
     Dates: start: 1996
  11. OXALIPLATIN. [Suspect]
     Active Substance: OXALIPLATIN
     Indication: HEPATIC LESION
     Dosage: 12 QCY
     Route: 065
     Dates: start: 200810, end: 2008
  12. OXALIPLATIN. [Suspect]
     Active Substance: OXALIPLATIN
     Indication: SMALL INTESTINE ADENOCARCINOMA
  13. FLUOROURACIL. [Suspect]
     Active Substance: FLUOROURACIL
     Indication: METASTASES TO LYMPH NODES

REACTIONS (9)
  - Toxicity to various agents [Unknown]
  - Neuropathy peripheral [Unknown]
  - Asthenia [Unknown]
  - Weight decreased [Unknown]
  - Thrombocytopenia [Unknown]
  - Leukopenia [Unknown]
  - Fistula [Unknown]
  - Malnutrition [Unknown]
  - Granulocytopenia [Unknown]

NARRATIVE: CASE EVENT DATE: 2008
